FAERS Safety Report 7390560-3 (Version None)
Quarter: 2011Q2

REPORT INFORMATION
  Report Type: 
  Country: None (occurrence: None)
  Receive Date: 20110404
  Receipt Date: 20110324
  Transmission Date: 20111010
  Serious: Yes (Hospitalization)
  Sender: FDA-Public Use
  Company Number: DE-BIOGENIDEC-2010BI038231

PATIENT
  Age: 35 Year
  Sex: Female

DRUGS (1)
  1. TYSABRI [Suspect]
     Indication: RELAPSING-REMITTING MULTIPLE SCLEROSIS
     Route: 042
     Dates: start: 20080701, end: 20100301

REACTIONS (5)
  - COGNITIVE DISORDER [None]
  - HERPES ZOSTER [None]
  - OPTIC NEURITIS [None]
  - VISUAL IMPAIRMENT [None]
  - GAIT DISTURBANCE [None]
